APPROVED DRUG PRODUCT: DOXAPRAM HYDROCHLORIDE
Active Ingredient: DOXAPRAM HYDROCHLORIDE
Strength: 20MG/ML
Dosage Form/Route: INJECTABLE;INJECTION
Application: A076266 | Product #001 | TE Code: AP
Applicant: CHARTWELL INJECTABLES LLC
Approved: Jan 10, 2003 | RLD: No | RS: No | Type: RX